FAERS Safety Report 7586053-0 (Version None)
Quarter: 2011Q3

REPORT INFORMATION
  Report Type: 
  Country: None (occurrence: None)
  Receive Date: 20110701
  Receipt Date: 20110624
  Transmission Date: 20111222
  Serious: Yes (Other)
  Sender: FDA-Public Use
  Company Number: GB-TEVA-288478ISR

PATIENT
  Age: 90 Year
  Sex: Female

DRUGS (1)
  1. LAMOTRIGINE [Suspect]
     Indication: EPILEPSY
     Route: 048

REACTIONS (4)
  - PNEUMONIA [None]
  - RENAL IMPAIRMENT [None]
  - NEUTROPENIA [None]
  - LEUKOPENIA [None]
